FAERS Safety Report 6310732-6 (Version None)
Quarter: 2009Q3

REPORT INFORMATION
  Report Type: 
  Country: None (occurrence: None)
  Receive Date: 20090811
  Receipt Date: 20090615
  Transmission Date: 20100115
  Serious: No
  Sender: FDA-Public Use
  Company Number: 1000006814

PATIENT
  Sex: Female

DRUGS (1)
  1. SAVELLA [Suspect]
     Indication: FIBROMYALGIA

REACTIONS (4)
  - HYPOAESTHESIA [None]
  - OEDEMA MOUTH [None]
  - PARAESTHESIA [None]
  - PRURITUS [None]
